FAERS Safety Report 13026325 (Version 1)
Quarter: 2016Q4

REPORT INFORMATION
  Report Type: Spontaneous
  Country: GB (occurrence: GB)
  Receive Date: 20161214
  Receipt Date: 20161214
  Transmission Date: 20170207
  Serious: Yes (Other)
  Sender: FDA-Public Use
  Company Number: GB-B. BRAUN MEDICAL INC.-1060771

PATIENT
  Age: 78 Year

DRUGS (7)
  1. REMIFENTANIL [Concomitant]
     Active Substance: REMIFENTANIL
     Dates: start: 20160615
  2. EPHEDRINE. [Concomitant]
     Active Substance: EPHEDRINE
     Dates: start: 20160615
  3. ATRACURIUM [Concomitant]
     Active Substance: ATRACURIUM
     Dates: start: 20160615
  4. METRONIDAZOLE. [Suspect]
     Active Substance: METRONIDAZOLE
     Indication: ANTIBIOTIC PROPHYLAXIS
     Dates: start: 20160615
  5. TEICOPLANIN [Suspect]
     Active Substance: TEICOPLANIN
     Dates: start: 20160615
  6. PROPOFOL. [Concomitant]
     Active Substance: PROPOFOL
     Dates: start: 20160615
  7. METARAMINOL [Concomitant]
     Active Substance: METARAMINOL
     Dates: start: 20160615

REACTIONS (1)
  - Anaphylactic reaction [None]
